FAERS Safety Report 9163485 (Version 1)
Quarter: 2012Q4

REPORT INFORMATION
  Report Type: 
  Country: US (occurrence: US)
  Receive Date: 20121207
  Receipt Date: 20121207
  Transmission Date: 20130627
  Serious: Yes (Hospitalization, Other)
  Sender: FDA-Public Use
  Company Number: US-RB-047442-12

PATIENT
  Age: 45 Year
  Sex: Female

DRUGS (1)
  1. SUBOXONE TABLET [Suspect]
     Indication: PRODUCT USED FOR UNKNOWN INDICATION
     Dosage: Dosing details not specified
     Route: 065

REACTIONS (2)
  - Cholecystitis acute [Unknown]
  - Tooth disorder [Not Recovered/Not Resolved]
